FAERS Safety Report 6806225 (Version 2)
Quarter: 2018Q4

REPORT INFORMATION
  Report Type: Spontaneous
  Country: GB (occurrence: GB)
  Receive Date: 20081107
  Receipt Date: 20181129
  Transmission Date: 20190205
  Serious: Yes (Congenital Anomaly, Other)
  Sender: FDA-Public Use
  Company Number: GB-TEVA-179909ISR

PATIENT
  Age: 0 Day
  Sex: Female

DRUGS (5)
  1. MIRTAZAPINE. [Suspect]
     Active Substance: MIRTAZAPINE
     Indication: DEPRESSION
     Route: 064
     Dates: start: 20080201
  2. PROPRANOLOL [Suspect]
     Active Substance: PROPRANOLOL HYDROCHLORIDE
     Indication: ANXIETY
     Route: 064
     Dates: start: 20080201
  3. URSODEOXYCHOLIC ACID [Concomitant]
     Active Substance: URSODIOL
     Route: 064
  4. VITAMIN K [Concomitant]
     Active Substance: PHYTONADIONE
     Route: 064
  5. ORLISTAT. [Suspect]
     Active Substance: ORLISTAT
     Indication: OBESITY
     Route: 064
     Dates: start: 20080201

REACTIONS (1)
  - Transposition of the great vessels [Unknown]

NARRATIVE: CASE EVENT DATE: 20081014
